FAERS Safety Report 13084346 (Version 1)
Quarter: 2017Q1

REPORT INFORMATION
  Report Type: Spontaneous
  Country: US (occurrence: US)
  Receive Date: 20170102
  Receipt Date: 20170102
  Transmission Date: 20170428
  Serious: Yes (Other)
  Sender: FDA-Public Use
  Company Number: None

PATIENT
  Age: 72 Year
  Sex: Male
  Weight: 76.5 kg

DRUGS (9)
  1. TAMSULOSIN [Concomitant]
     Active Substance: TAMSULOSIN
  2. AREDS [Concomitant]
     Active Substance: MINERALS\VITAMINS
  3. BUDESONIDE EC [Concomitant]
     Active Substance: BUDESONIDE
  4. WARFARIN [Concomitant]
     Active Substance: WARFARIN
  5. FERROUS SULFATE. [Concomitant]
     Active Substance: FERROUS SULFATE
  6. AMOXICILLIN. [Concomitant]
     Active Substance: AMOXICILLIN
  7. LOPERAMIDE (IMODIUM) [Concomitant]
  8. CITRACAL+D3 [Concomitant]
  9. HUMIRA [Suspect]
     Active Substance: ADALIMUMAB
     Indication: CROHN^S DISEASE
     Dosage: ?          QUANTITY:1 INJECTION(S);OTHER FREQUENCY:WEEKLY;?
     Route: 058
     Dates: start: 20160608, end: 20161203

REACTIONS (3)
  - Grip strength decreased [None]
  - Headache [None]
  - Nervous system disorder [None]

NARRATIVE: CASE EVENT DATE: 20161203
